FAERS Safety Report 5620352-4 (Version None)
Quarter: 2008Q1

REPORT INFORMATION
  Report Type: 
  Country: None (occurrence: None)
  Receive Date: 20080208
  Receipt Date: 20080129
  Transmission Date: 20080703
  Serious: Yes (Other)
  Sender: FDA-Public Use
  Company Number: DE-ELI_LILLY_AND_COMPANY-DE200711001960

PATIENT
  Sex: Male

DRUGS (9)
  1. BYETTA [Suspect]
     Dosage: 10 UG, 2/D
     Route: 058
     Dates: start: 20070817, end: 20071029
  2. BYETTA [Suspect]
     Dosage: UNK, UNKNOWN
     Route: 058
     Dates: start: 20071002
  3. METFORMIN HCL [Concomitant]
     Dosage: 1000 D/F, 3/D
     Route: 065
  4. LANTUS [Concomitant]
     Dosage: UNK, UNKNOWN
     Route: 065
  5. RAMIPRIL [Concomitant]
     Dosage: UNK, UNKNOWN
     Route: 065
  6. AMLODIPINE [Concomitant]
     Dosage: UNK, UNKNOWN
     Route: 065
  7. OSSOFORTIN FORTE [Concomitant]
     Dosage: UNK, UNKNOWN
     Route: 065
  8. NEBIDO                             /00103107/ [Concomitant]
     Dosage: EVERY 12 WEEKS
     Route: 030
  9. ANTIPSORIATICS [Concomitant]
     Indication: PSORIASIS
     Dosage: UNK, UNKNOWN
     Route: 065

REACTIONS (1)
  - PANCREATITIS ACUTE [None]
